FAERS Safety Report 9356128 (Version 1)
Quarter: 2013Q2

REPORT INFORMATION
  Report Type: Spontaneous
  Country: US (occurrence: US)
  Receive Date: 20130619
  Receipt Date: 20130619
  Transmission Date: 20140414
  Serious: Yes (Death, Hospitalization)
  Sender: FDA-Public Use
  Company Number: US-GLAXOSMITHKLINE-A0713048A

PATIENT
  Age: 59 Year
  Sex: Female
  Weight: 102.3 kg

DRUGS (6)
  1. AVANDIA [Suspect]
     Indication: TYPE 2 DIABETES MELLITUS
     Dosage: 4MG PER DAY
     Route: 048
     Dates: start: 20031029, end: 20060304
  2. AVANDARYL [Suspect]
     Indication: TYPE 2 DIABETES MELLITUS
     Route: 048
     Dates: start: 20060624, end: 20060716
  3. AVANDAMET [Suspect]
     Indication: TYPE 2 DIABETES MELLITUS
     Dosage: 8000MG PER DAY
     Route: 048
     Dates: start: 20060717, end: 20100102
  4. GABAPENTIN [Concomitant]
  5. PLAVIX [Concomitant]
  6. NAPROXEN [Concomitant]

REACTIONS (3)
  - Myocardial infarction [Unknown]
  - Breast cancer metastatic [Fatal]
  - Cardiac failure congestive [Unknown]
